FAERS Safety Report 18579477 (Version 1)
Quarter: 2020Q4

REPORT INFORMATION
  Report Type: Spontaneous
  Country: DK (occurrence: DK)
  Receive Date: 20201204
  Receipt Date: 20201204
  Transmission Date: 20210114
  Serious: Yes (Other)
  Sender: FDA-Public Use
  Company Number: DK-B.I. PHARMACEUTICALS,INC./RIDGEFIELD-2020-BI-065027

PATIENT
  Age: 53 Year
  Sex: Male
  Weight: 102 kg

DRUGS (5)
  1. SIMVASTATIN ACTAVIS [Concomitant]
     Active Substance: SIMVASTATIN
     Indication: HYPERCHOLESTEROLAEMIA
     Dosage: STRENGTH: 40 MG
     Route: 048
     Dates: start: 20190520
  2. METFORMIN [Concomitant]
     Active Substance: METFORMIN HYDROCHLORIDE
     Indication: DIABETES MELLITUS
     Dosage: STRENGTH: 1000 MG
     Route: 048
     Dates: start: 20191218
  3. JARDIANCE [Suspect]
     Active Substance: EMPAGLIFLOZIN
     Indication: DIABETES MELLITUS
     Dosage: STRENGTH: 10 MG
     Route: 048
     Dates: start: 20200724, end: 20200819
  4. JARDIANCE [Suspect]
     Active Substance: EMPAGLIFLOZIN
     Route: 048
     Dates: end: 20200921
  5. ENALAPRIL KRKA [Concomitant]
     Active Substance: ENALAPRIL MALEATE
     Indication: HYPERTENSION
     Dosage: STRENGTH: 5 MG
     Route: 048
     Dates: start: 20200520

REACTIONS (4)
  - Pharyngeal swelling [Recovered/Resolved]
  - Oropharyngeal discomfort [Recovered/Resolved]
  - Angioedema [Recovered/Resolved]
  - Oropharyngeal pain [Recovered/Resolved]

NARRATIVE: CASE EVENT DATE: 20200908
